FAERS Safety Report 5936092-8 (Version None)
Quarter: 2008Q4

REPORT INFORMATION
  Report Type: 
  Country: None (occurrence: None)
  Receive Date: 20081030
  Receipt Date: 20081023
  Transmission Date: 20090506
  Serious: Yes (Hospitalization)
  Sender: FDA-Public Use
  Company Number: PHRM2007FR01077

PATIENT
  Age: 63 Year
  Sex: Female
  Weight: 62 kg

DRUGS (2)
  1. COTAREG [Suspect]
     Indication: HYPERTENSION
     Dosage: 1 DF, QD
     Route: 048
  2. TAMOXIFEN CITRATE [Suspect]
     Route: 048
     Dates: end: 20060731

REACTIONS (10)
  - CORTISOL FREE URINE DECREASED [None]
  - DYSPNOEA EXERTIONAL [None]
  - GAIT DISTURBANCE [None]
  - HORMONE LEVEL ABNORMAL [None]
  - HYPERTRIGLYCERIDAEMIA [None]
  - LIPOMA [None]
  - LIPOMA EXCISION [None]
  - MOBILITY DECREASED [None]
  - SURGERY [None]
  - WEIGHT INCREASED [None]
